FAERS Safety Report 9925286 (Version 1)
Quarter: 2014Q1

REPORT INFORMATION
  Report Type: Spontaneous
  Country: IT (occurrence: IT)
  Receive Date: 20140226
  Receipt Date: 20140226
  Transmission Date: 20141002
  Serious: Yes (Hospitalization)
  Sender: FDA-Public Use
  Company Number: IT-WATSON-2014-03066

PATIENT
  Age: 80 Year
  Sex: Male

DRUGS (9)
  1. METFORMIN (UNKNOWN) [Suspect]
     Indication: DIABETES MELLITUS
     Dosage: 1500 MG, DAILY
     Route: 048
     Dates: start: 20120101, end: 20140112
  2. HUMALOG [Suspect]
     Indication: DIABETES MELLITUS
     Dosage: 30 UI IN THOUSANDS/DAILY
     Route: 058
     Dates: start: 20120101, end: 20140112
  3. HUMALOG [Suspect]
     Dosage: 10 UI IN THOUSANDS/DAILY
     Route: 058
     Dates: start: 20120101, end: 20140112
  4. TRIATEC                            /00116401/ [Concomitant]
     Indication: HYPERTENSION
     Dosage: UNK
     Route: 065
  5. ZYLORIC [Concomitant]
     Indication: PRODUCT USED FOR UNKNOWN INDICATION
     Dosage: UNK
     Route: 065
  6. COAPROVEL [Concomitant]
     Indication: HYPERTENSION
     Dosage: UNK
     Route: 065
  7. CARDURA [Concomitant]
     Indication: PRODUCT USED FOR UNKNOWN INDICATION
     Dosage: UNK
     Route: 065
  8. SEROQUEL [Concomitant]
     Indication: SENILE DEMENTIA
     Dosage: UNK
     Route: 065
  9. ACETYLSALICYLIC ACID [Concomitant]
     Indication: PRODUCT USED FOR UNKNOWN INDICATION
     Dosage: 100 MG, UNK
     Route: 065

REACTIONS (1)
  - Hypoglycaemic coma [Recovering/Resolving]
